FAERS Safety Report 6209476-0 (Version None)
Quarter: 2009Q2

REPORT INFORMATION
  Report Type: 
  Country: None (occurrence: None)
  Receive Date: 20090601
  Receipt Date: 20081202
  Transmission Date: 20091009
  Serious: No
  Sender: FDA-Public Use
  Company Number: A0758113A

PATIENT
  Age: 82 Year
  Sex: Male

DRUGS (13)
  1. AUGMENTIN XR [Suspect]
     Dosage: 1000MG TWICE PER DAY
     Route: 048
     Dates: start: 20081122, end: 20081123
  2. CLARITIN [Concomitant]
  3. COUMADIN [Concomitant]
  4. ATENOLOL [Concomitant]
  5. HYDROCHLOROTHIAZIDE [Concomitant]
  6. LISINOPRIL [Concomitant]
  7. ZOCOR [Concomitant]
  8. NEXIUM [Concomitant]
  9. PROSCAR [Concomitant]
  10. ALLOPURINOL [Concomitant]
  11. ASPIRIN [Concomitant]
  12. MULTI-VITAMIN [Concomitant]
  13. VITAMIN B-12 [Concomitant]

REACTIONS (1)
  - TONGUE DISCOLOURATION [None]
